FAERS Safety Report 18773655 (Version 3)
Quarter: 2021Q2

REPORT INFORMATION
  Report Type: Report from Study
  Country: BR (occurrence: BR)
  Receive Date: 20210122
  Receipt Date: 20210403
  Transmission Date: 20210717
  Serious: Yes (Hospitalization, Other)
  Sender: FDA-Public Use
  Company Number: BR-UCBSA-2021002140

PATIENT
  Age: 59 Year
  Sex: Female
  Weight: 48 kg

DRUGS (18)
  1. SIMETHICONE (DIMETHICONE) [Concomitant]
     Active Substance: DIMETHICONE
     Dosage: 40 MILLIGRAM, 3X/DAY (TID)
     Route: 048
  2. LAXANTES [Concomitant]
     Active Substance: HERBALS
     Indication: CONSTIPATION
     Dosage: 6 MONTHS AGO 5 MILLIGRAM, ONCE DAILY (QD)
     Route: 048
     Dates: start: 202010
  3. PREDNISONA [Concomitant]
     Active Substance: PREDNISONE
     Indication: SYSTEMIC LUPUS ERYTHEMATOSUS
     Dosage: 20 MILLIGRAM, ONCE DAILY (QD)
     Route: 048
     Dates: start: 1999
  4. GLUCOSAMINE AND CHONDROITIN [Concomitant]
     Active Substance: CHONDROITIN SULFATE (BOVINE)\GLUCOSAMINE HYDROCHLORIDE
     Indication: DEPRESSION
     Dosage: 2 DOSAGE FORM, ONCE DAILY (QD)
     Route: 048
  5. GLUCOSAMINE AND CHONDROITIN [Concomitant]
     Active Substance: CHONDROITIN SULFATE (BOVINE)\GLUCOSAMINE HYDROCHLORIDE
     Dosage: TWICE DAILY
     Route: 048
  6. DIPIRONA [Concomitant]
     Active Substance: METAMIZOLE
     Indication: PYREXIA
     Dosage: UNK
     Route: 048
  7. PACO [Concomitant]
     Active Substance: ACETAMINOPHEN\CODEINE PHOSPHATE
     Indication: PAIN
     Dosage: UNK
     Route: 048
     Dates: start: 202012
  8. HYDROXYCHLOROQUINE [Concomitant]
     Active Substance: HYDROXYCHLOROQUINE
  9. PREGABALINA [Concomitant]
     Active Substance: PREGABALIN
     Indication: SYSTEMIC LUPUS ERYTHEMATOSUS
     Dosage: 150 MILLIGRAM, ONCE DAILY (QD)
     Route: 048
     Dates: start: 2017
  10. CLONAZEPAM. [Concomitant]
     Active Substance: CLONAZEPAM
     Indication: DEPRESSION
     Dosage: 30 DROP (30 MG), ONCE DAILY (QD)
     Route: 048
  11. MIOSAN [Concomitant]
     Active Substance: CYCLOBENZAPRINE
     Indication: DEPRESSION
     Dosage: 1 DOSAGE FORM, ONCE DAILY (QD)
     Route: 048
  12. LAXANTES [Concomitant]
     Active Substance: HERBALS
     Dosage: 1 DOSAGE FORM, ONCE DAILY (QD)
     Route: 048
     Dates: start: 20210112
  13. MIOSAN [Concomitant]
     Active Substance: CYCLOBENZAPRINE
     Dosage: UNK UNK, ONCE DAILY (QD)
     Route: 048
  14. VENLAFAXINA [VENLAFAXINE] [Concomitant]
     Active Substance: VENLAFAXINE HYDROCHLORIDE
     Indication: SYSTEMIC LUPUS ERYTHEMATOSUS
     Dosage: 150 MILLIGRAM, ONCE DAILY (QD)
     Route: 048
     Dates: start: 2016
  15. DONAREN [Concomitant]
     Active Substance: TRAZODONE HYDROCHLORIDE
     Indication: RHEUMATOID ARTHRITIS
     Dosage: 100 MILLIGRAM, ONCE DAILY (QD)
     Route: 048
  16. COLIRIO [Concomitant]
     Indication: VISUAL IMPAIRMENT
     Dosage: 4 MILLIGRAM, 3X/DAY (TID)
     Route: 047
  17. CERTOLIZUMAB PEGOL [Suspect]
     Active Substance: CERTOLIZUMAB PEGOL
     Indication: RHEUMATOID ARTHRITIS
     Dosage: 400 MILLIGRAM, EV 2 WEEKS(QOW)
     Route: 058
     Dates: start: 2019, end: 20210315
  18. SIMETHICONE (DIMETHICONE) [Concomitant]
     Active Substance: DIMETHICONE
     Indication: CONSTIPATION
     Dosage: 20 MILLIGRAM, 3X/DAY (TID)
     Route: 048
     Dates: start: 2017

REACTIONS (8)
  - Tendon injury [Not Recovered/Not Resolved]
  - Asthenia [Not Recovered/Not Resolved]
  - Head injury [Recovered/Resolved]
  - Fall [Recovered/Resolved]
  - Systemic lupus erythematosus [Not Recovered/Not Resolved]
  - Memory impairment [Not Recovered/Not Resolved]
  - Headache [Not Recovered/Not Resolved]
  - Visual impairment [Unknown]

NARRATIVE: CASE EVENT DATE: 2019
